FAERS Safety Report 7312315-8 (Version None)
Quarter: 2011Q1

REPORT INFORMATION
  Report Type: 
  Country: None (occurrence: None)
  Receive Date: 20110224
  Receipt Date: 20110218
  Transmission Date: 20110831
  Serious: Yes (Other)
  Sender: FDA-Public Use
  Company Number: B0701941A

PATIENT
  Age: 71 Year
  Sex: Male

DRUGS (2)
  1. AMOXICILLIN TRIHYDRATE [Concomitant]
     Indication: LOWER RESPIRATORY TRACT INFECTION
     Dosage: 500MG THREE TIMES PER DAY
     Route: 065
     Dates: start: 20110201, end: 20110205
  2. FLIXONASE [Suspect]
     Dosage: 1SPR VARIABLE DOSE
     Route: 065
     Dates: start: 20110201, end: 20110201

REACTIONS (4)
  - PURULENT DISCHARGE [None]
  - HYPERSENSITIVITY [None]
  - SKIN DISCOMFORT [None]
  - SKIN CHAPPED [None]
